FAERS Safety Report 9846482 (Version 2)
Quarter: 2014Q1

REPORT INFORMATION
  Report Type: Spontaneous
  Country: US (occurrence: None)
  Receive Date: 20140122
  Receipt Date: 20140207
  Transmission Date: 20141002
  Serious: Yes (Hospitalization)
  Sender: FDA-Public Use
  Company Number: AUR-APL-2014-00428

PATIENT
  Age: 52 Year
  Sex: Female

DRUGS (5)
  1. SEMISODIUM VALPROATE [Suspect]
     Indication: CONVULSION
  2. RISPERIDONE (RISPERIDONE) [Concomitant]
  3. PHENYTOIN (PHENYTOIN) [Concomitant]
  4. LORAZEPAM (LORAZEPAM) [Concomitant]
  5. HALOPERIDOL (HALOPERIDOL) [Concomitant]

REACTIONS (12)
  - Hyperammonaemic encephalopathy [None]
  - Convulsion [None]
  - Suicidal ideation [None]
  - Body temperature increased [None]
  - Lethargy [None]
  - Asterixis [None]
  - Perseveration [None]
  - Alanine aminotransferase increased [None]
  - Aspartate aminotransferase increased [None]
  - Blood potassium decreased [None]
  - No therapeutic response [None]
  - Hepatic function abnormal [None]
